FAERS Safety Report 8967696 (Version 1)
Quarter: 2012Q4

REPORT INFORMATION
  Report Type: Spontaneous
  Country: GB (occurrence: None)
  Receive Date: 20121210
  Receipt Date: 20121210
  Transmission Date: 20130627
  Serious: Yes (Other)
  Sender: FDA-Public Use
  Company Number: GB-DEXPHARM-20121676

PATIENT
  Age: 65 Year
  Sex: Female

DRUGS (1)
  1. CHLORHEXIDINE [Suspect]
     Indication: PREOPERATIVE CARE
     Dosage: dosage text: indication: Skin prep for surgery
     Route: 061
     Dates: start: 20120904, end: 20120904

REACTIONS (2)
  - Blister [None]
  - Type IV hypersensitivity reaction [None]
